FAERS Safety Report 7779533-6 (Version None)
Quarter: 2011Q3

REPORT INFORMATION
  Report Type: 
  Country: None (occurrence: None)
  Receive Date: 20110927
  Receipt Date: 20110919
  Transmission Date: 20111222
  Serious: Yes (Hospitalization)
  Sender: FDA-Public Use
  Company Number: PA-BAYER-201029826NA

PATIENT
  Age: 32 Year
  Sex: Female
  Weight: 71.655 kg

DRUGS (5)
  1. AMOXICILLIN [Concomitant]
     Dosage: 250 MG, UNK
     Dates: start: 20080604
  2. IBUPROFEN [Concomitant]
     Dosage: 800 MG, UNK
     Dates: start: 20080604
  3. YASMIN [Suspect]
     Indication: ACNE
     Dosage: UNK
     Dates: start: 20080101
  4. YAZ [Suspect]
     Indication: ACNE
     Dosage: UNK
     Dates: start: 20080101
  5. HYDROCODONE BITARTRATE AND ACETAMINOPHEN [Concomitant]
     Dosage: UNK
     Dates: start: 20080604

REACTIONS (2)
  - PULMONARY EMBOLISM [None]
  - INJURY [None]
